FAERS Safety Report 23495206 (Version 2)
Quarter: 2024Q1

REPORT INFORMATION
  Report Type: Report from Study
  Country: CO (occurrence: CO)
  Receive Date: 20240207
  Receipt Date: 20240216
  Transmission Date: 20240410
  Serious: Yes (Hospitalization, Other)
  Sender: FDA-Public Use
  Company Number: CO-ASTELLAS-2024US003641

PATIENT
  Age: 63 Year
  Sex: Male
  Weight: 45 kg

DRUGS (1)
  1. TACROLIMUS [Suspect]
     Active Substance: TACROLIMUS
     Indication: Heart transplant
     Route: 048
     Dates: start: 20230907

REACTIONS (4)
  - Arteritis [Recovered/Resolved]
  - Pneumonia bacterial [Recovered/Resolved]
  - Kidney infection [Recovered/Resolved]
  - Nosocomial infection [Recovered/Resolved]

NARRATIVE: CASE EVENT DATE: 20230907
